FAERS Safety Report 15066242 (Version 3)
Quarter: 2019Q2

REPORT INFORMATION
  Report Type: Spontaneous
  Country: US (occurrence: US)
  Receive Date: 20180626
  Receipt Date: 20190402
  Transmission Date: 20190711
  Serious: Yes (Other)
  Sender: FDA-Public Use
  Company Number: US-GLAXOSMITHKLINE-US2018111469

PATIENT
  Sex: Female

DRUGS (3)
  1. NUCALA [Suspect]
     Active Substance: MEPOLIZUMAB
     Indication: ASTHMA
     Dosage: UNK UNK, CYC
     Dates: start: 20180618
  2. XOLAIR [Suspect]
     Active Substance: OMALIZUMAB
     Indication: PRODUCT USED FOR UNKNOWN INDICATION
     Dosage: UNK
  3. TYLENOL [Concomitant]
     Active Substance: ACETAMINOPHEN

REACTIONS (17)
  - Injection site pain [Unknown]
  - Retching [Unknown]
  - Productive cough [Unknown]
  - Injection site pruritus [Unknown]
  - Irritability [Unknown]
  - Headache [Unknown]
  - Fatigue [Unknown]
  - Injection site reaction [Unknown]
  - Injection site erythema [Unknown]
  - Diarrhoea [Unknown]
  - Dizziness [Unknown]
  - Seborrhoea [Unknown]
  - Drug ineffective [Unknown]
  - Depression [Unknown]
  - Asthma [Unknown]
  - Anaphylactic reaction [Unknown]
  - Somnolence [Unknown]
